FAERS Safety Report 9736346 (Version 1)
Quarter: 2013Q4

REPORT INFORMATION
  Report Type: Spontaneous
  Country: US (occurrence: US)
  Receive Date: 20131206
  Receipt Date: 20131206
  Transmission Date: 20140711
  Serious: No
  Sender: FDA-Public Use
  Company Number: US-TEVA-447018USA

PATIENT
  Sex: 0

DRUGS (1)
  1. PROAIR HFA [Suspect]
     Indication: ASTHMA

REACTIONS (3)
  - Dyspnoea [Unknown]
  - Drug ineffective [Unknown]
  - Device malfunction [Unknown]
